FAERS Safety Report 23271899 (Version 3)
Quarter: 2023Q4

REPORT INFORMATION
  Report Type: Spontaneous
  Country: GB (occurrence: GB)
  Receive Date: 20231207
  Receipt Date: 20231215
  Transmission Date: 20240110
  Serious: Yes (Other)
  Sender: FDA-Public Use
  Company Number: None

PATIENT
  Age: 48 Year
  Sex: Female
  Weight: 62 kg

DRUGS (7)
  1. MOMETASONE FUROATE [Suspect]
     Active Substance: MOMETASONE FUROATE
     Indication: Ill-defined disorder
     Dosage: SPRAY TWO PUFFS INTO EACH NOSTRIL ONCE DAILY
     Route: 045
     Dates: start: 20231204
  2. MOMETASONE [Concomitant]
     Active Substance: MOMETASONE
     Indication: Ill-defined disorder
     Dosage: SPRAY TWO PUFFS INTO EACH NOSTRIL ONCE DAILY
     Dates: start: 20231122
  3. ESTRADIOL [Concomitant]
     Active Substance: ESTRADIOL
     Indication: Ill-defined disorder
     Dosage: UNK
     Route: 065
     Dates: start: 20220513
  4. OMEPRAZOLE [Concomitant]
     Active Substance: OMEPRAZOLE
     Indication: Ill-defined disorder
     Dosage: UNK
     Route: 065
     Dates: start: 20231130
  5. PROGESTERONE [Concomitant]
     Active Substance: PROGESTERONE
     Indication: Ill-defined disorder
     Dosage: TAKE TWO TABLETS AT NIGHT ON THE LAST 12 DAYS O
     Dates: start: 20220513
  6. CORTICOSTEROID NOS [Concomitant]
     Active Substance: CORTICOSTEROID NOS
     Indication: Ill-defined disorder
     Dosage: 1 DF
     Dates: start: 20231116, end: 20231128
  7. VAGIRUX [Concomitant]
     Indication: Ill-defined disorder
     Dosage: 2 DF, QD
     Route: 065
     Dates: start: 20220708

REACTIONS (2)
  - Rash [Recovered/Resolved]
  - Dizziness [Unknown]

NARRATIVE: CASE EVENT DATE: 20231204
